FAERS Safety Report 8243738-0 (Version None)
Quarter: 2012Q1

REPORT INFORMATION
  Report Type: 
  Country: None (occurrence: None)
  Receive Date: 20120329
  Receipt Date: 20110517
  Transmission Date: 20120608
  Serious: No
  Sender: FDA-Public Use
  Company Number: US-MYLANLABS-2011S1010196

PATIENT
  Age: 57 Year
  Sex: Female
  Weight: 70.76 kg

DRUGS (8)
  1. PLAQUENIL [Concomitant]
  2. EMSAM [Suspect]
     Dosage: QD
     Route: 062
  3. EMSAM [Suspect]
     Dosage: QD
     Route: 062
  4. SYNTHROID [Concomitant]
  5. COZAAR [Concomitant]
  6. EMSAM [Suspect]
     Indication: DEPRESSION
     Dosage: QD
     Route: 062
     Dates: start: 20070501
  7. AMLODIPINE [Concomitant]
  8. LITHIUM CARBONATE [Concomitant]

REACTIONS (4)
  - AMNESIA [None]
  - INSOMNIA [None]
  - BLOOD PRESSURE INCREASED [None]
  - TREMOR [None]
